FAERS Safety Report 15968688 (Version 2)
Quarter: 2019Q1

REPORT INFORMATION
  Report Type: Spontaneous
  Country: PL (occurrence: PL)
  Receive Date: 20190215
  Receipt Date: 20190315
  Transmission Date: 20190418
  Serious: Yes (Life-Threatening, Hospitalization)
  Sender: FDA-Public Use
  Company Number: PL-BAUSCH-BL-2019-003999

PATIENT
  Age: 58 Year
  Sex: Male

DRUGS (2)
  1. METFORMIN [Suspect]
     Active Substance: METFORMIN HYDROCHLORIDE
     Dosage: 60 TABLETS OF METFORMIN OF 850 MG
     Route: 048
  2. METFORMIN [Suspect]
     Active Substance: METFORMIN HYDROCHLORIDE
     Indication: TYPE 2 DIABETES MELLITUS
     Route: 065

REACTIONS (7)
  - Cardiac failure [Unknown]
  - Suicide attempt [Unknown]
  - Lactic acidosis [Recovered/Resolved]
  - Overdose [Unknown]
  - Respiratory failure [Unknown]
  - Toxicity to various agents [Recovered/Resolved]
  - Renal failure [Recovering/Resolving]
